FAERS Safety Report 16860612 (Version 3)
Quarter: 2020Q1

REPORT INFORMATION
  Report Type: Report from Study
  Country: None (occurrence: CO)
  Receive Date: 20190927
  Receipt Date: 20200124
  Transmission Date: 20200409
  Serious: Yes (Other)
  Sender: FDA-Public Use
  Company Number: CO-ABBVIE-19K-036-2940168-00

PATIENT
  Age: 82 Year
  Sex: Female
  Weight: 68 kg

DRUGS (4)
  1. HUMIRA [Suspect]
     Active Substance: ADALIMUMAB
     Indication: RHEUMATOID ARTHRITIS
     Route: 058
     Dates: start: 20090902
  2. HUMIRA [Suspect]
     Active Substance: ADALIMUMAB
     Indication: RHEUMATOID ARTHRITIS
     Route: 058
  3. NIFEDIPINE. [Suspect]
     Active Substance: NIFEDIPINE
     Indication: PRODUCT USED FOR UNKNOWN INDICATION
     Route: 065
  4. AMLODIPINE [Suspect]
     Active Substance: AMLODIPINE BESYLATE
     Indication: PRODUCT USED FOR UNKNOWN INDICATION
     Route: 065

REACTIONS (13)
  - Oropharyngeal pain [Unknown]
  - Arthralgia [Recovering/Resolving]
  - Dizziness [Unknown]
  - Arthropathy [Recovering/Resolving]
  - Joint effusion [Unknown]
  - Memory impairment [Unknown]
  - Arthritis [Recovering/Resolving]
  - Somnolence [Unknown]
  - Aphasia [Unknown]
  - Palpitations [Unknown]
  - Headache [Unknown]
  - Oral disorder [Unknown]
  - Nausea [Unknown]

NARRATIVE: CASE EVENT DATE: 201909
